FAERS Safety Report 11056125 (Version 1)
Quarter: 2015Q2

REPORT INFORMATION
  Report Type: Spontaneous
  Country: US (occurrence: US)
  Receive Date: 20150422
  Receipt Date: 20150422
  Transmission Date: 20150821
  Serious: Yes (Other)
  Sender: FDA-Public Use
  Company Number: US-JNJFOC-20150416199

PATIENT

DRUGS (1)
  1. REMICADE [Suspect]
     Active Substance: INFLIXIMAB
     Indication: PRODUCT USED FOR UNKNOWN INDICATION
     Route: 042

REACTIONS (5)
  - Crohn^s disease [Unknown]
  - Sensory disturbance [Unknown]
  - Formication [Unknown]
  - Feeling cold [Unknown]
  - Middle insomnia [Unknown]

NARRATIVE: CASE EVENT DATE: 201411
